FAERS Safety Report 6531582-1 (Version None)
Quarter: 2010Q1

REPORT INFORMATION
  Report Type: 
  Country: None (occurrence: None)
  Receive Date: 20100108
  Receipt Date: 20100104
  Transmission Date: 20100710
  Serious: Yes (Other)
  Sender: FDA-Public Use
  Company Number: US-SANOFI-AVENTIS-2010SA000001

PATIENT
  Age: 70 Year
  Sex: Female

DRUGS (11)
  1. MULTAQ [Suspect]
     Indication: ATRIAL FIBRILLATION
     Route: 048
     Dates: start: 20091001, end: 20091101
  2. MULTAQ [Suspect]
     Indication: ATRIAL FLUTTER
     Route: 048
     Dates: start: 20091001, end: 20091101
  3. MULTAQ [Suspect]
     Route: 048
     Dates: start: 20091101
  4. MULTAQ [Suspect]
     Route: 048
     Dates: start: 20091101
  5. MULTAQ [Suspect]
     Dosage: 2/3 OF A 400 MG TABLET TWICE DAILY
     Route: 048
     Dates: start: 20090101
  6. MULTAQ [Suspect]
     Dosage: 2/3 OF A 400 MG TABLET TWICE DAILY
     Route: 048
     Dates: start: 20090101
  7. MULTAQ [Suspect]
     Route: 048
     Dates: start: 20090101
  8. MULTAQ [Suspect]
     Route: 048
     Dates: start: 20090101
  9. COUMADIN [Concomitant]
     Indication: ATRIAL FIBRILLATION
  10. SYNTHROID [Concomitant]
     Indication: HYPOTHYROIDISM
  11. FISH OIL [Concomitant]

REACTIONS (14)
  - ABDOMINAL DISTENSION [None]
  - ATRIAL FLUTTER [None]
  - BLOOD PRESSURE INCREASED [None]
  - CHEST PAIN [None]
  - FATIGUE [None]
  - HEART RATE INCREASED [None]
  - HYPOKALAEMIA [None]
  - NAUSEA [None]
  - OEDEMA PERIPHERAL [None]
  - PRURITUS [None]
  - SINUS BRADYCARDIA [None]
  - SPIDER VEIN [None]
  - WEIGHT DECREASED [None]
  - WRONG TECHNIQUE IN DRUG USAGE PROCESS [None]
